FAERS Safety Report 24220893 (Version 1)
Quarter: 2024Q3

REPORT INFORMATION
  Report Type: Report from Study
  Country: US (occurrence: None)
  Receive Date: 20240819
  Receipt Date: 20240819
  Transmission Date: 20241017
  Serious: Yes (Other)
  Sender: ASTRAZENECA
  Company Number: 2022A397775

PATIENT
  Age: 29171 Day
  Sex: Male

DRUGS (1)
  1. CALQUENCE [Suspect]
     Active Substance: ACALABRUTINIB
     Indication: Chronic lymphocytic leukaemia
     Route: 048

REACTIONS (10)
  - Fall [Unknown]
  - Thrombosis [Unknown]
  - Vascular occlusion [Unknown]
  - Influenza [Unknown]
  - Peripheral swelling [Unknown]
  - Heart rate increased [Unknown]
  - Hypophagia [Unknown]
  - Gait disturbance [Unknown]
  - Decreased activity [Unknown]
  - Asthenia [Unknown]

NARRATIVE: CASE EVENT DATE: 20220902
